FAERS Safety Report 21602006 (Version 1)
Quarter: 2022Q4

REPORT INFORMATION
  Report Type: Spontaneous
  Country: CA (occurrence: CA)
  Receive Date: 20221116
  Receipt Date: 20221116
  Transmission Date: 20230113
  Serious: Yes (Life-Threatening, Hospitalization, Other)
  Sender: FDA-Public Use
  Company Number: None

PATIENT
  Age: 72 Year
  Sex: Male
  Weight: 90 kg

DRUGS (20)
  1. FLUOROURACIL [Suspect]
     Active Substance: FLUOROURACIL
     Indication: Chemotherapy
  2. CAMPTOSAR [Suspect]
     Active Substance: IRINOTECAN HYDROCHLORIDE
     Indication: Chemotherapy
     Route: 042
  3. LEUCOVORIN [Suspect]
     Active Substance: LEUCOVORIN
     Indication: Chemotherapy
  4. DEXAMETHASONE [Concomitant]
     Active Substance: DEXAMETHASONE
     Route: 065
  5. DAPTOMYCIN [Concomitant]
     Active Substance: DAPTOMYCIN
  6. FENTANYL [Concomitant]
     Active Substance: FENTANYL
  7. FINASTERIDE [Concomitant]
     Active Substance: FINASTERIDE
  8. FUROSEMIDE [Concomitant]
     Active Substance: FUROSEMIDE
     Route: 065
  9. GABAPENTIN [Concomitant]
     Active Substance: GABAPENTIN
  10. HYDROMORPHONE HYDROCHLORIDE [Concomitant]
     Active Substance: HYDROMORPHONE HYDROCHLORIDE
  11. IPRATROPIUM [Concomitant]
     Active Substance: IPRATROPIUM
  12. EDOXABAN [Concomitant]
     Active Substance: EDOXABAN
  13. LOPERAMIDE [Concomitant]
     Active Substance: LOPERAMIDE
  14. ONDANSETRON [Concomitant]
     Active Substance: ONDANSETRON
  15. BENZOCAINE [Concomitant]
     Active Substance: BENZOCAINE
  16. PANTOPRAZOLE [Concomitant]
     Active Substance: PANTOPRAZOLE
  17. PSYLLIUM [Concomitant]
     Active Substance: PLANTAGO SEED
     Dosage: 100%
  18. RAMIPRIL [Concomitant]
     Active Substance: RAMIPRIL
  19. ALBUTEROL [Concomitant]
     Active Substance: ALBUTEROL
  20. SENNOSIDES [Concomitant]
     Active Substance: SENNOSIDES

REACTIONS (5)
  - COVID-19 pneumonia [Recovered/Resolved]
  - Delirium [Recovered/Resolved]
  - Febrile neutropenia [Recovered/Resolved]
  - Pneumococcal sepsis [Recovered/Resolved]
  - Staphylococcal sepsis [Recovered/Resolved]
